FAERS Safety Report 8495638-9 (Version None)
Quarter: 2012Q3

REPORT INFORMATION
  Report Type: 
  Country: None (occurrence: None)
  Receive Date: 20120709
  Receipt Date: 20120705
  Transmission Date: 20120928
  Serious: Yes (Other)
  Sender: FDA-Public Use
  Company Number: FR-ROCHE-1077093

PATIENT
  Sex: Female
  Weight: 31 kg

DRUGS (4)
  1. CALCIUM CARBONATE [Concomitant]
     Route: 048
     Dates: start: 20111101
  2. ACTEMRA [Suspect]
     Indication: JUVENILE ARTHRITIS
     Dosage: 8 MG/KG (STARTING DOSE)
     Route: 042
     Dates: start: 20120510, end: 20120607
  3. PREDNISONE TAB [Concomitant]
     Indication: JUVENILE ARTHRITIS
     Route: 048
     Dates: start: 20111101
  4. ERGOCALCIFEROL [Concomitant]
     Route: 048
     Dates: start: 20111101

REACTIONS (4)
  - VOMITING [None]
  - INFUSION RELATED REACTION [None]
  - VERTIGO [None]
  - LIVEDO RETICULARIS [None]
